FAERS Safety Report 9764681 (Version 1)
Quarter: 2013Q4

REPORT INFORMATION
  Report Type: Spontaneous
  Country: US (occurrence: None)
  Receive Date: 20131213
  Receipt Date: 20131213
  Transmission Date: 20140711
  Serious: Yes (Other)
  Sender: FDA-Public Use
  Company Number: 2013SA023961

PATIENT
  Age: 74 Year
  Sex: Female

DRUGS (2)
  1. ASPERCREME HEAT RELIEVING GEL [Suspect]
     Indication: PRODUCT USED FOR UNKNOWN INDICATION
     Route: 061
     Dates: start: 20110607
  2. ASPERCREME [Concomitant]

REACTIONS (3)
  - Application site burn [None]
  - Application site scar [None]
  - Application site erythema [None]
